FAERS Safety Report 10627517 (Version 2)
Quarter: 2015Q1

REPORT INFORMATION
  Report Type: Spontaneous
  Country: US (occurrence: US)
  Receive Date: 20141205
  Receipt Date: 20150203
  Transmission Date: 20150720
  Serious: No
  Sender: FDA-Public Use
  Company Number: US-009507513-1411USA004352

PATIENT
  Age: 65 Year
  Sex: Male
  Weight: 90.25 kg

DRUGS (1)
  1. NOROXIN [Suspect]
     Active Substance: NORFLOXACIN
     Indication: CYSTITIS
     Dosage: 400 MG, UNK
     Route: 048

REACTIONS (9)
  - Rash generalised [Recovered/Resolved]
  - Pruritus [Recovered/Resolved]
  - Erythema [Not Recovered/Not Resolved]
  - Rash macular [Not Recovered/Not Resolved]
  - Dry skin [Not Recovered/Not Resolved]
  - Skin exfoliation [Not Recovered/Not Resolved]
  - Adverse reaction [Not Recovered/Not Resolved]
  - Pain [Not Recovered/Not Resolved]
  - Skin burning sensation [Not Recovered/Not Resolved]

NARRATIVE: CASE EVENT DATE: 201411
